FAERS Safety Report 24385995 (Version 1)
Quarter: 2024Q4

REPORT INFORMATION
  Report Type: Spontaneous
  Country: IN (occurrence: IN)
  Receive Date: 20241001
  Receipt Date: 20241001
  Transmission Date: 20250115
  Serious: Yes (Death)
  Sender: GE HEALTHCARE
  Company Number: IN-GE HEALTHCARE-2024CSU010967

PATIENT
  Age: 67 Year
  Sex: Male
  Weight: 72.3 kg

DRUGS (1)
  1. OMNIPAQUE [Suspect]
     Active Substance: IOHEXOL
     Indication: Angiocardiogram
     Dosage: 10 ML, TOTAL
     Route: 013
     Dates: start: 20240921, end: 20240921

REACTIONS (4)
  - Choking sensation [Fatal]
  - Cardiac arrest [Fatal]
  - Bradycardia [Fatal]
  - Hypotension [Fatal]

NARRATIVE: CASE EVENT DATE: 20240921
